FAERS Safety Report 5084630-2 (Version None)
Quarter: 2006Q3

REPORT INFORMATION
  Report Type: 
  Country: None (occurrence: None)
  Receive Date: 20060821
  Receipt Date: 20060815
  Transmission Date: 20061208
  Serious: Yes (Hospitalization)
  Sender: FDA-Public Use
  Company Number: US-JNJFOC-20060704263

PATIENT
  Sex: Female
  Weight: 98.43 kg

DRUGS (5)
  1. TYLENOL (CAPLET) [Suspect]
     Route: 048
  2. TYLENOL (CAPLET) [Suspect]
     Indication: ARTHRALGIA
     Route: 048
  3. COUMADIN [Concomitant]
     Indication: CARDIAC DISORDER
     Dosage: 5 MG THREE DAYS A WEEK/2.5 MG FOUR DAYS A WEEK, ORAL
     Route: 048
  4. AMIODARONE HCL [Concomitant]
     Indication: CARDIAC DISORDER
     Route: 048
  5. VITAMINS [Concomitant]

REACTIONS (2)
  - CONSTIPATION [None]
  - GASTROINTESTINAL STOMA COMPLICATION [None]
